FAERS Safety Report 8588682-4 (Version None)
Quarter: 2012Q3

REPORT INFORMATION
  Report Type: 
  Country: None (occurrence: None)
  Receive Date: 20120813
  Receipt Date: 20120809
  Transmission Date: 20120928
  Serious: Yes (Hospitalization, Other)
  Sender: FDA-Public Use
  Company Number: PHHY2012AR069367

PATIENT
  Sex: Female

DRUGS (1)
  1. RASILEZ [Suspect]
     Indication: BLOOD PRESSURE
     Dosage: 150 MG/DAILY
     Dates: start: 20100101, end: 20120809

REACTIONS (3)
  - BREAST CANCER [None]
  - NERVOUSNESS [None]
  - BLOOD PRESSURE INCREASED [None]
